FAERS Safety Report 23034059 (Version 1)
Quarter: 2023Q4

REPORT INFORMATION
  Report Type: Spontaneous
  Country: US (occurrence: None)
  Receive Date: 20231005
  Receipt Date: 20231005
  Transmission Date: 20240110
  Serious: No
  Sender: FDA-Public Use
  Company Number: None

PATIENT
  Age: 53 Year
  Sex: Female
  Weight: 94.5 kg

DRUGS (8)
  1. FLUOXETINE [Suspect]
     Active Substance: FLUOXETINE HYDROCHLORIDE
     Indication: Depression
     Dosage: OTHER QUANTITY : 30 CAPSULE(S);?FREQUENCY : DAILY;?
     Route: 048
     Dates: start: 20230826, end: 20230921
  2. METFORMIN [Concomitant]
     Active Substance: METFORMIN HYDROCHLORIDE
  3. Welburtin XL [Concomitant]
  4. Women^s One-a-day [Concomitant]
  5. VITAMIN B COMPLEX [Concomitant]
     Active Substance: CYANOCOBALAMIN\DEXPANTHENOL\NIACINAMIDE\PYRIDOXINE HYDROCHLORIDE\RIBOFLAVIN 5^-PHOSPHATE SODIUM\THIA
  6. VITAMIN D [Concomitant]
     Active Substance: VITAMIN D NOS
  7. BENADRYL [Concomitant]
     Active Substance: DIPHENHYDRAMINE HYDROCHLORIDE
  8. FLAXSEED [Suspect]
     Active Substance: FLAX SEED

REACTIONS (1)
  - Vision blurred [None]

NARRATIVE: CASE EVENT DATE: 20230909
